FAERS Safety Report 5096647-2 (Version None)
Quarter: 2006Q3

REPORT INFORMATION
  Report Type: 
  Country: None (occurrence: None)
  Receive Date: 20060830
  Receipt Date: 20060828
  Transmission Date: 20061208
  Serious: Yes (Hospitalization, Other)
  Sender: FDA-Public Use
  Company Number: HQWYE867119APR06

PATIENT
  Age: 47 Year
  Sex: Male

DRUGS (10)
  1. RAPAMUNE [Suspect]
     Indication: PROPHYLAXIS AGAINST TRANSPLANT REJECTION
     Dates: start: 20060207, end: 20060424
  2. MYCOPHENOLATE MOFETIL [Concomitant]
  3. PREDNISONE TAB [Concomitant]
  4. ATENOLOL [Concomitant]
  5. ENALAPRIL [Concomitant]
  6. DOXAZOSIN MESYLATE [Concomitant]
  7. HYDROCHLOROTHIAZIDE [Concomitant]
  8. OMEPRAZOLE [Concomitant]
  9. VANCOMYCIN [Concomitant]
  10. RIFAMPICIN [Concomitant]

REACTIONS (3)
  - OEDEMA PERIPHERAL [None]
  - PYREXIA [None]
  - WOUND COMPLICATION [None]
